FAERS Safety Report 18533267 (Version 1)
Quarter: 2020Q4

REPORT INFORMATION
  Report Type: Spontaneous
  Country: US (occurrence: US)
  Receive Date: 20201120
  Receipt Date: 20201120
  Transmission Date: 20210114
  Serious: Yes (Life-Threatening, Disabling)
  Sender: FDA-Public Use
  Company Number: None

PATIENT
  Age: 52 Year
  Sex: Male
  Weight: 134.55 kg

DRUGS (10)
  1. ALLOPURINOL. [Suspect]
     Active Substance: ALLOPURINOL
     Indication: GOUT
     Route: 048
     Dates: start: 20200218, end: 20200227
  2. VITAMIN C [Concomitant]
     Active Substance: ASCORBIC ACID
  3. FOLIC ACID. [Concomitant]
     Active Substance: FOLIC ACID
  4. VITAMIN D3 [Concomitant]
     Active Substance: CHOLECALCIFEROL
  5. IRON [Concomitant]
     Active Substance: IRON
  6. NEXIUM [Concomitant]
     Active Substance: ESOMEPRAZOLE MAGNESIUM
  7. MAGNESIUM [Concomitant]
     Active Substance: MAGNESIUM
  8. VITAMIN B12 [Concomitant]
     Active Substance: CYANOCOBALAMIN
  9. METATOPOROL [Concomitant]
  10. CPAP MACHINE [Concomitant]

REACTIONS (5)
  - Therapy cessation [None]
  - Hypertension [None]
  - Rash [None]
  - Chest discomfort [None]
  - Dyspnoea [None]

NARRATIVE: CASE EVENT DATE: 20200214
